FAERS Safety Report 17240834 (Version 1)
Quarter: 2020Q1

REPORT INFORMATION
  Report Type: Other
  Country: IT (occurrence: IT)
  Receive Date: 20200107
  Receipt Date: 20200107
  Transmission Date: 20200409
  Serious: Yes (Hospitalization)
  Sender: FDA-Public Use
  Company Number: IT-DENTSPLY-2019SCDP000711

PATIENT
  Age: 4 Year
  Sex: Male

DRUGS (1)
  1. PRILOCAINE AND LIDOCAINE [Suspect]
     Active Substance: LIDOCAINE\PRILOCAINE
     Indication: MOLLUSCUM CONTAGIOSUM
     Dosage: 15 GRAM, TOTAL
     Route: 061
     Dates: start: 20191216, end: 20191216

REACTIONS (4)
  - Sopor [Recovered/Resolved]
  - Medication error [Recovered/Resolved]
  - Blood methaemoglobin present [Recovered/Resolved]
  - Asthenia [Recovered/Resolved]

NARRATIVE: CASE EVENT DATE: 20191216
